FAERS Safety Report 23061722 (Version 1)
Quarter: 2023Q4

REPORT INFORMATION
  Report Type: Spontaneous
  Country: US (occurrence: US)
  Receive Date: 20231013
  Receipt Date: 20231013
  Transmission Date: 20240110
  Serious: Yes (Hospitalization, Other)
  Sender: FDA-Public Use
  Company Number: US-PCCINC-2023-PPL-000452

PATIENT

DRUGS (3)
  1. MORPHINE SULFATE [Suspect]
     Active Substance: MORPHINE SULFATE
     Indication: Local anaesthesia
     Dosage: PERIARTICULAR KNEE INJECTION (4 MILLIGRAM)
  2. KETOROLAC [Suspect]
     Active Substance: KETOROLAC TROMETHAMINE
     Indication: Local anaesthesia
     Dosage: PERIARTICULAR KNEE INJECTION (60 MILLIGRAM)
  3. BUPIVACAINE [Suspect]
     Active Substance: BUPIVACAINE
     Indication: Local anaesthesia
     Dosage: PERIARTICULAR KNEE INJECTION (300 MILLIGRAM) (40 ML OF A 0.75% SOLUTION)

REACTIONS (5)
  - Hyperhidrosis [Recovered/Resolved]
  - Bradycardia [Recovered/Resolved]
  - Hypotension [Recovered/Resolved]
  - Somnolence [Recovered/Resolved]
  - Product use issue [Unknown]
